FAERS Safety Report 25533485 (Version 1)
Quarter: 2025Q3

REPORT INFORMATION
  Report Type: Spontaneous
  Country: US (occurrence: US)
  Receive Date: 20250709
  Receipt Date: 20250709
  Transmission Date: 20251020
  Serious: Yes (Hospitalization, Other)
  Sender: ALEMBIC
  Company Number: US-ALEMBIC PHARMACUETICALS LIMITED-2025SCAL000744

PATIENT

DRUGS (2)
  1. QUETIAPINE FUMARATE [Suspect]
     Active Substance: QUETIAPINE FUMARATE
     Indication: Major depression
     Route: 065
  2. ARIPIPRAZOLE [Suspect]
     Active Substance: ARIPIPRAZOLE
     Indication: Major depression
     Route: 065

REACTIONS (7)
  - Thrombocytosis [Recovered/Resolved]
  - White blood cell count increased [Recovered/Resolved]
  - Acute kidney injury [Recovered/Resolved]
  - Hyponatraemia [Recovered/Resolved]
  - Neuroleptic malignant syndrome [Recovered/Resolved]
  - Muscle rigidity [Recovered/Resolved]
  - Blood creatine phosphokinase increased [Recovered/Resolved]
